FAERS Safety Report 4809486-1 (Version None)
Quarter: 2005Q4

REPORT INFORMATION
  Report Type: 
  Country: None (occurrence: None)
  Receive Date: 20051021
  Receipt Date: 20030204
  Transmission Date: 20060501
  Serious: No
  Sender: FDA-Public Use
  Company Number: US_030191579

PATIENT
  Age: 16 Year
  Sex: Female

DRUGS (1)
  1. ZYPREXA [Suspect]
     Dosage: 20 MG/DAY

REACTIONS (3)
  - BLOOD PROLACTIN INCREASED [None]
  - BREAST DISCHARGE [None]
  - BREAST HAEMORRHAGE [None]
